FAERS Safety Report 13046501 (Version 2)
Quarter: 2020Q4

REPORT INFORMATION
  Report Type: Spontaneous
  Country: US (occurrence: US)
  Receive Date: 20161220
  Receipt Date: 20201210
  Transmission Date: 20210113
  Serious: No
  Sender: FDA-Public Use
  Company Number: US-PFIZER INC-2016586926

PATIENT
  Age: 50 Year
  Sex: Female
  Weight: 122 kg

DRUGS (5)
  1. PREMARIN [Suspect]
     Active Substance: ESTROGENS, CONJUGATED
     Indication: HOT FLUSH
     Dosage: 1.25 MG, 1X/DAY
     Route: 048
  2. LASIX [Concomitant]
     Active Substance: FUROSEMIDE
     Indication: OEDEMA PERIPHERAL
     Dosage: 20 MG, UNK
     Route: 048
     Dates: start: 1981
  3. POTASSIUM [Concomitant]
     Active Substance: POTASSIUM
     Dosage: 20000 UG
  4. PREMARIN [Suspect]
     Active Substance: ESTROGENS, CONJUGATED
     Indication: MENOPAUSE
     Dosage: 0.6 MG, 1X/DAY
     Route: 048
     Dates: start: 2016
  5. PREMARIN [Suspect]
     Active Substance: ESTROGENS, CONJUGATED
     Dosage: UNK (90 GMTUBE/KIT WITH 4 REFILLS OR 30 GM TUBE/KIT WITH 11 REFILLS)

REACTIONS (2)
  - Pre-existing condition improved [Unknown]
  - Therapeutic response unexpected [Unknown]
